FAERS Safety Report 22786137 (Version 3)
Quarter: 2023Q4

REPORT INFORMATION
  Report Type: Report from Study
  Country: US (occurrence: US)
  Receive Date: 20230804
  Receipt Date: 20231111
  Transmission Date: 20240110
  Serious: Yes (Hospitalization, Other)
  Sender: FDA-Public Use
  Company Number: US-ABBVIE-5354034

PATIENT
  Age: 65 Year
  Sex: Male
  Weight: 106 kg

DRUGS (27)
  1. HUMIRA [Suspect]
     Active Substance: ADALIMUMAB
     Indication: Crohn^s disease
     Route: 058
     Dates: start: 2014, end: 2017
  2. HUMIRA [Suspect]
     Active Substance: ADALIMUMAB
     Route: 058
  3. HUMIRA [Suspect]
     Active Substance: ADALIMUMAB
     Route: 058
     Dates: start: 2017
  4. UNSPECIFIED INGREDIENT [Concomitant]
     Active Substance: UNSPECIFIED INGREDIENT
     Indication: Product used for unknown indication
     Route: 048
  5. CHOLESTYRAMINE [Concomitant]
     Active Substance: CHOLESTYRAMINE
     Indication: Product used for unknown indication
     Dosage: (WITH SUGAR) (4GRAM POWDER IN PACKET 1
     Route: 048
     Dates: start: 20230418
  6. BALSALAZIDE [Concomitant]
     Active Substance: BALSALAZIDE
     Indication: Product used for unknown indication
     Dosage: TIME INTERVAL: 0.33333333 DAYS: FORM STRENGTH: 750 MG
     Route: 048
     Dates: start: 20230418
  7. OMEPRAZOLE [Concomitant]
     Active Substance: OMEPRAZOLE
     Indication: Product used for unknown indication
     Dosage: CAPSULE, DELAYED?FORM STRENGTH: 40 MG
     Route: 048
     Dates: start: 20230418
  8. PREDNISONE [Concomitant]
     Active Substance: PREDNISONE
     Indication: Product used for unknown indication
     Dosage: 10MG?AS DIRECTED
     Route: 048
     Dates: start: 20220913
  9. SERTRALINE HYDROCHLORIDE [Concomitant]
     Active Substance: SERTRALINE HYDROCHLORIDE
     Indication: Product used for unknown indication
     Dosage: 100MG
     Route: 048
  10. SYSTANE (HYPROMELLOSE 2910 (4000 MPA.S)) [Concomitant]
     Active Substance: HYPROMELLOSE 2910 (4000 MPA.S)
     Indication: Product used for unknown indication
     Dosage: 0.4-0.3% DROPS, OPHTHALMIC AS NEEDED
  11. ELOCON [Concomitant]
     Active Substance: MOMETASONE FUROATE
     Indication: Product used for unknown indication
     Dosage: 0.1% SOLUTION, NON-O, EXTERNAL AT BEDTIME
  12. IRBESARTAN [Concomitant]
     Active Substance: IRBESARTAN
     Indication: Product used for unknown indication
     Dosage: 150MG
     Route: 048
  13. FERROUS SULFATE [Concomitant]
     Active Substance: FERROUS SULFATE
     Indication: Product used for unknown indication
     Dosage: 325 (65 FE)MG TABLET,
  14. OSTEO-BI-FLEX ADV [Concomitant]
     Indication: Product used for unknown indication
     Dosage: DOUBLE ST
     Route: 048
  15. GABAPENTIN [Concomitant]
     Active Substance: GABAPENTIN
     Indication: Product used for unknown indication
     Dosage: 300MG CAPSULE, 2 ORAL TWO TIMES DAILY
     Route: 048
  16. CALCIUM CARBONATE\CHOLECALCIFEROL [Concomitant]
     Active Substance: CALCIUM CARBONATE\CHOLECALCIFEROL
     Indication: Product used for unknown indication
     Route: 048
  17. LOPERAMIDE [Concomitant]
     Active Substance: LOPERAMIDE
     Indication: Antidiarrhoeal supportive care
     Dosage: 2MG
     Route: 048
  18. TWINRIX [Concomitant]
     Active Substance: HEPATITIS A VIRUS STRAIN HM175 ANTIGEN (FORMALDEHYDE INACTIVATED)\HEPATITIS B VIRUS SUBTYPE ADW2 HBS
     Indication: Immunisation
     Dosage: TIME INTERVAL: TOTAL
     Dates: start: 20140107, end: 20140107
  19. TWINRIX [Concomitant]
     Active Substance: HEPATITIS A VIRUS STRAIN HM175 ANTIGEN (FORMALDEHYDE INACTIVATED)\HEPATITIS B VIRUS SUBTYPE ADW2 HBS
     Indication: Immunisation
     Dosage: TIME INTERVAL: TOTAL
     Dates: start: 20140211, end: 20140211
  20. TWINRIX [Concomitant]
     Active Substance: HEPATITIS A VIRUS STRAIN HM175 ANTIGEN (FORMALDEHYDE INACTIVATED)\HEPATITIS B VIRUS SUBTYPE ADW2 HBS
     Indication: Immunisation
     Dosage: TIME INTERVAL: TOTAL
     Dates: start: 20140818, end: 20140818
  21. INFLUENZA VIRUS VACCINE [Concomitant]
     Active Substance: INFLUENZA VIRUS VACCINE
     Indication: Product used for unknown indication
     Dosage: TIME INTERVAL: TOTAL
     Dates: start: 2014, end: 2014
  22. INFLUENZA VIRUS VACCINE [Concomitant]
     Active Substance: INFLUENZA VIRUS VACCINE
     Indication: Product used for unknown indication
     Dosage: TIME INTERVAL: TOTAL
     Dates: start: 20171113, end: 20171113
  23. INFLUENZA VIRUS VACCINE [Concomitant]
     Active Substance: INFLUENZA VIRUS VACCINE
     Indication: Product used for unknown indication
     Dosage: TIME INTERVAL: TOTAL
     Dates: start: 2021, end: 2021
  24. INFLUENZA VIRUS VACCINE [Concomitant]
     Active Substance: INFLUENZA VIRUS VACCINE
     Indication: Product used for unknown indication
     Dosage: TIME INTERVAL: TOTAL
     Dates: start: 202110, end: 202110
  25. INFLUENZA VIRUS VACCINE [Concomitant]
     Active Substance: INFLUENZA VIRUS VACCINE
     Indication: Product used for unknown indication
     Dosage: TIME INTERVAL: TOTAL
     Dates: start: 202210, end: 202210
  26. PNEUMOCOCCAL VACCINE POLYVALENT NOS [Concomitant]
     Active Substance: PNEUMOCOCCAL VACCINE POLYVALENT
     Indication: Product used for unknown indication
     Dosage: TIME INTERVAL: TOTAL
     Dates: start: 2019, end: 2019
  27. PNEUMOCOCCAL VACCINE POLYVALENT NOS [Concomitant]
     Active Substance: PNEUMOCOCCAL VACCINE POLYVALENT
     Indication: Product used for unknown indication
     Dosage: TIME INTERVAL: TOTAL

REACTIONS (19)
  - Small intestinal obstruction [Unknown]
  - Colorectal adenoma [Unknown]
  - Diverticulum intestinal [Unknown]
  - Haemorrhoids [Unknown]
  - Anastomotic stenosis [Unknown]
  - Cholecystectomy [Unknown]
  - Intestinal dilatation [Unknown]
  - Mucosal inflammation [Unknown]
  - Bronchiolitis [Not Recovered/Not Resolved]
  - Abdominal discomfort [Recovered/Resolved]
  - Anal stenosis [Unknown]
  - Hepatic steatosis [Unknown]
  - Ileal stenosis [Unknown]
  - Drug specific antibody present [Unknown]
  - Fibrosis [Unknown]
  - Abdominal distension [Unknown]
  - Gastrointestinal erosion [Unknown]
  - Frequent bowel movements [Unknown]
  - Faeces soft [Unknown]

NARRATIVE: CASE EVENT DATE: 20160101
